FAERS Safety Report 16047668 (Version 1)
Quarter: 2019Q1

REPORT INFORMATION
  Report Type: Spontaneous
  Country: SE (occurrence: SE)
  Receive Date: 20190307
  Receipt Date: 20190307
  Transmission Date: 20190418
  Serious: Yes (Hospitalization, Other)
  Sender: FDA-Public Use
  Company Number: SE-PFIZER INC-2019097912

PATIENT
  Age: 14 Year
  Sex: Female
  Weight: 60 kg

DRUGS (4)
  1. COCILLANA-ETYFIN [ETHYLMORPHINE HYDROCHLORIDE;GUAREA GUIDONIA;POLYGALA [Suspect]
     Active Substance: ETHYLMORPHINE HYDROCHLORIDE
     Dosage: APPROXIMATELY 100 ML
     Route: 048
     Dates: start: 20161107, end: 20161107
  2. SERTRALINE HCL [Suspect]
     Active Substance: SERTRALINE HYDROCHLORIDE
     Dosage: 250 (UNIT UNSPECIFIED)
  3. TETRALYSAL [TETRACYCLINE] [Suspect]
     Active Substance: TETRACYCLINE
     Dosage: UNK
  4. ATARAX [Suspect]
     Active Substance: HYDROXYZINE HYDROCHLORIDE
     Dosage: 12.5 (UNIT UNSPECIFIED)

REACTIONS (4)
  - Heart rate increased [Recovering/Resolving]
  - Intentional self-injury [Unknown]
  - Tremor [Unknown]
  - Intentional overdose [Unknown]

NARRATIVE: CASE EVENT DATE: 20161107
